FAERS Safety Report 9088774 (Version 1)
Quarter: 2013Q1

REPORT INFORMATION
  Report Type: Spontaneous
  Country: US (occurrence: US)
  Receive Date: 20130131
  Receipt Date: 20130131
  Transmission Date: 20140127
  Serious: Yes (Other)
  Sender: FDA-Public Use
  Company Number: US-ASTELLAS-2013US000364

PATIENT
  Sex: Male

DRUGS (1)
  1. XTANDI [Suspect]
     Indication: PRODUCT USED FOR UNKNOWN INDICATION
     Dosage: 4 DF, UID/QD
     Route: 048
     Dates: start: 20121008

REACTIONS (6)
  - Cheyne-Stokes respiration [Unknown]
  - Fluid retention [Unknown]
  - Dysphagia [Unknown]
  - Foreign body [Unknown]
  - Throat irritation [Unknown]
  - Asthenia [Unknown]
